FAERS Safety Report 6089127-9 (Version None)
Quarter: 2009Q1

REPORT INFORMATION
  Report Type: 
  Country: None (occurrence: None)
  Receive Date: 20090224
  Receipt Date: 20090209
  Transmission Date: 20090719
  Serious: Yes (Life-Threatening, Hospitalization, Other)
  Sender: FDA-Public Use
  Company Number: DE-TEVA-183909ISR

PATIENT
  Sex: Male
  Weight: 92 kg

DRUGS (4)
  1. METFORMIN [Suspect]
     Indication: TYPE 2 DIABETES MELLITUS
     Route: 048
     Dates: start: 20080929, end: 20081009
  2. CAPTOPRIL PLUS [Suspect]
     Indication: HYPERTENSION
     Dosage: 25/12.5MG
     Route: 048
     Dates: start: 20080919, end: 20081007
  3. IBUPROFEN [Concomitant]
     Indication: PAIN
     Route: 048
     Dates: start: 20080115, end: 20081001
  4. TRAMADOL HYDROCHLORIDE [Concomitant]
     Indication: BACK PAIN
     Route: 048
     Dates: start: 20081007, end: 20081007

REACTIONS (1)
  - THROMBOTIC THROMBOCYTOPENIC PURPURA [None]
